FAERS Safety Report 8329367-9 (Version None)
Quarter: 2012Q2

REPORT INFORMATION
  Report Type: 
  Country: None (occurrence: None)
  Receive Date: 20120502
  Receipt Date: 20120425
  Transmission Date: 20120825
  Serious: Yes (Other)
  Sender: FDA-Public Use
  Company Number: GB-JNJFOC-20120413750

PATIENT
  Sex: Male

DRUGS (2)
  1. NICOTINE [Suspect]
     Route: 062
  2. NICOTINE [Suspect]
     Indication: SMOKING CESSATION THERAPY
     Route: 062
     Dates: start: 20110101

REACTIONS (5)
  - APPLICATION SITE URTICARIA [None]
  - APPLICATION SITE DISCOLOURATION [None]
  - APPLICATION SITE SCAR [None]
  - CHEMICAL INJURY [None]
  - APPLICATION SITE PAIN [None]
